FAERS Safety Report 25405863 (Version 1)
Quarter: 2025Q2

REPORT INFORMATION
  Report Type: Spontaneous
  Country: US (occurrence: US)
  Receive Date: 20250606
  Receipt Date: 20250606
  Transmission Date: 20250716
  Serious: No
  Sender: ROCHE
  Company Number: US-ROCHE-10000302683

PATIENT
  Sex: Female

DRUGS (2)
  1. XOLAIR PFS [Suspect]
     Active Substance: OMALIZUMAB
     Indication: Urticaria
     Dosage: 2 SYRINGE
     Route: 058
     Dates: start: 202503
  2. XOLAIR PFS [Suspect]
     Active Substance: OMALIZUMAB

REACTIONS (3)
  - Pruritus [Unknown]
  - Arthralgia [Unknown]
  - Fatigue [Unknown]
